FAERS Safety Report 6024941-7 (Version None)
Quarter: 2008Q4

REPORT INFORMATION
  Report Type: 
  Country: None (occurrence: None)
  Receive Date: 20081231
  Receipt Date: 20081224
  Transmission Date: 20090506
  Serious: Yes (Hospitalization)
  Sender: FDA-Public Use
  Company Number: CA-JNJFOC-20081001847

PATIENT
  Sex: Female
  Weight: 100 kg

DRUGS (13)
  1. REMICADE [Suspect]
     Route: 042
  2. REMICADE [Suspect]
     Route: 042
  3. REMICADE [Suspect]
     Indication: GRANULOMA ANNULARE
     Route: 042
  4. ASAPHEN [Concomitant]
  5. AVALID [Concomitant]
     Dosage: 150MG/125 MG
  6. EFFEXOR [Concomitant]
  7. SYNTHROID [Concomitant]
  8. NOVO-METFORMIN [Concomitant]
  9. LIPITOR [Concomitant]
  10. ASCORBIC ACID [Concomitant]
  11. VITAMIN E [Concomitant]
  12. CALCIUM [Concomitant]
  13. VITAMIN D [Concomitant]

REACTIONS (2)
  - ROAD TRAFFIC ACCIDENT [None]
  - SHOULDER OPERATION [None]
